FAERS Safety Report 9974044 (Version 2)
Quarter: 2014Q1

REPORT INFORMATION
  Report Type: Spontaneous
  Country: US (occurrence: US)
  Receive Date: 20140306
  Receipt Date: 20140317
  Transmission Date: 20141002
  Serious: Yes (Other)
  Sender: FDA-Public Use
  Company Number: US-TEVA-467261USA

PATIENT
  Age: 29 Year
  Sex: Female

DRUGS (1)
  1. PLAN B ONE-STEP [Suspect]
     Indication: POST COITAL CONTRACEPTION
     Dosage: 1.5 MILLIGRAM DAILY;
     Route: 048
     Dates: start: 201004, end: 201004

REACTIONS (4)
  - Abortion induced [Recovered/Resolved]
  - Drug ineffective [Recovered/Resolved]
  - Vaginal haemorrhage [Unknown]
  - Menstruation delayed [Unknown]
